FAERS Safety Report 5050679-9 (Version None)
Quarter: 2006Q3

REPORT INFORMATION
  Report Type: 
  Country: None (occurrence: None)
  Receive Date: 20060707
  Receipt Date: 20060621
  Transmission Date: 20061208
  Serious: Yes (Death, Hospitalization)
  Sender: FDA-Public Use
  Company Number: 6023607

PATIENT
  Sex: Female

DRUGS (1)
  1. METHIMAZOLE [Suspect]
     Indication: BASEDOW'S DISEASE
     Dosage: MATERNAL USE
     Route: 064

REACTIONS (13)
  - APLASIA [None]
  - CAESAREAN SECTION [None]
  - CONGENITAL INTESTINAL MALFORMATION [None]
  - DRUG EXPOSURE DURING PREGNANCY [None]
  - FOETAL GROWTH RETARDATION [None]
  - GALLBLADDER ANOMALY CONGENITAL [None]
  - IRIS COLOBOMA [None]
  - MICROCORNEA [None]
  - NIPPLE DISORDER [None]
  - PLACENTA PRAEVIA [None]
  - RETINAL COLOBOMA [None]
  - SHOCK HAEMORRHAGIC [None]
  - UMBILICAL HAEMORRHAGE [None]
